FAERS Safety Report 22966187 (Version 6)
Quarter: 2024Q1

REPORT INFORMATION
  Report Type: Other
  Country: US (occurrence: US)
  Receive Date: 20230921
  Receipt Date: 20240223
  Transmission Date: 20240410
  Serious: Yes (Other)
  Sender: FDA-Public Use
  Company Number: US-UROVANT SCIENCES GMBH-202309-URV-001825

PATIENT
  Age: 61 Year
  Sex: Female

DRUGS (11)
  1. GEMTESA [Suspect]
     Active Substance: VIBEGRON
     Indication: Product used for unknown indication
     Dosage: UNK
     Route: 065
     Dates: start: 2023, end: 202308
  2. TEPROTUMUMAB [Suspect]
     Active Substance: TEPROTUMUMAB
     Indication: Toxic goitre
     Dosage: 701 MG, 90 MINS
     Route: 042
     Dates: start: 20230630
  3. TEPROTUMUMAB [Suspect]
     Active Substance: TEPROTUMUMAB
     Indication: Graves^ disease
     Dosage: 1402 MG, Q3WK, OVER 60 TO 90 MINS
     Route: 042
     Dates: start: 20230721
  4. TEPROTUMUMAB [Suspect]
     Active Substance: TEPROTUMUMAB
     Indication: Endocrine ophthalmopathy
     Dosage: 1402 MG, Q3WK
     Route: 042
  5. TEPROTUMUMAB [Suspect]
     Active Substance: TEPROTUMUMAB
     Dosage: MOST RECENT INFUSION
     Route: 042
     Dates: start: 20230921
  6. TEPROTUMUMAB [Suspect]
     Active Substance: TEPROTUMUMAB
     Dosage: 1402 MG, Q3WK ((20MG/KG) (8TH INFUSION)
     Route: 042
     Dates: start: 20231123, end: 20231123
  7. TEPROTUMUMAB [Suspect]
     Active Substance: TEPROTUMUMAB
     Dosage: FOURTH INFUSION
     Route: 042
  8. ERGOCALCIFEROL [Concomitant]
     Active Substance: ERGOCALCIFEROL
     Indication: Product used for unknown indication
     Route: 065
  9. MONTELUKAST SODIUM [Concomitant]
     Active Substance: MONTELUKAST SODIUM
     Indication: Product used for unknown indication
     Route: 048
  10. METHIMAZOLE [Concomitant]
     Active Substance: METHIMAZOLE
     Indication: Product used for unknown indication
     Dosage: 5 MG
     Route: 048
  11. ARTIFICIAL TEARS                   /00222401/ [Concomitant]
     Indication: Product used for unknown indication
     Route: 047

REACTIONS (23)
  - Faecaloma [Unknown]
  - Exophthalmos [Recovering/Resolving]
  - Hypoacusis [Recovering/Resolving]
  - Pain [Unknown]
  - Infusion site pruritus [Recovering/Resolving]
  - Infusion site erythema [Recovering/Resolving]
  - Infusion site rash [Recovering/Resolving]
  - Ear pain [Recovering/Resolving]
  - Eye colour change [Unknown]
  - Hordeolum [Recovered/Resolved]
  - Malaise [Recovered/Resolved]
  - Feeling abnormal [Recovered/Resolved]
  - Eyelid margin crusting [Unknown]
  - Ocular hyperaemia [Unknown]
  - Eye pain [Recovered/Resolved]
  - Eye swelling [Unknown]
  - Vision blurred [Unknown]
  - Symptom recurrence [Unknown]
  - Nausea [Unknown]
  - Diarrhoea [Recovering/Resolving]
  - Ear discomfort [Not Recovered/Not Resolved]
  - Vertigo [Recovered/Resolved]
  - Sleep deficit [Not Recovered/Not Resolved]

NARRATIVE: CASE EVENT DATE: 20230101
